FAERS Safety Report 12466928 (Version 1)
Quarter: 2016Q2

REPORT INFORMATION
  Report Type: Spontaneous
  Country: US (occurrence: None)
  Receive Date: 20160614
  Receipt Date: 20160614
  Transmission Date: 20160815
  Serious: Yes (Other)
  Sender: FDA-Public Use
  Company Number: None

PATIENT
  Age: 39 Year
  Sex: Female
  Weight: 65.77 kg

DRUGS (7)
  1. LORATADINE. [Concomitant]
     Active Substance: LORATADINE
  2. SERTRALINE, 100 MG [Suspect]
     Active Substance: SERTRALINE HYDROCHLORIDE
     Indication: ANXIETY
     Route: 048
     Dates: start: 20110601, end: 20160501
  3. SERTRALINE, 100 MG [Suspect]
     Active Substance: SERTRALINE HYDROCHLORIDE
     Indication: DEPRESSION
     Route: 048
     Dates: start: 20110601, end: 20160501
  4. NAPROXEN. [Concomitant]
     Active Substance: NAPROXEN
  5. VITAMIN D [Concomitant]
     Active Substance: CHOLECALCIFEROL
  6. MULTIVITAMIN [Concomitant]
     Active Substance: VITAMINS
  7. VITAMIN B [Concomitant]
     Active Substance: VITAMIN B

REACTIONS (4)
  - Musculoskeletal pain [None]
  - Depression [None]
  - Fatigue [None]
  - Muscle spasms [None]
